FAERS Safety Report 9624568 (Version 1)
Quarter: 2013Q4

REPORT INFORMATION
  Report Type: Spontaneous
  Country: US (occurrence: US)
  Receive Date: 20131015
  Receipt Date: 20131015
  Transmission Date: 20140711
  Serious: Yes (Death)
  Sender: FDA-Public Use
  Company Number: US-SA-2013SA101198

PATIENT
  Age: 66 Year
  Sex: Male

DRUGS (1)
  1. RENVELA [Suspect]
     Indication: HYPERPHOSPHATAEMIA
     Dosage: PATIENT RECEIVED A TOTAL OF 990 TABLETS OF SEVELAMER CARBONATE
     Route: 065
     Dates: start: 201304

REACTIONS (1)
  - Death [Fatal]
